FAERS Safety Report 5949903-7 (Version None)
Quarter: 2008Q4

REPORT INFORMATION
  Report Type: 
  Country: None (occurrence: None)
  Receive Date: 20081112
  Receipt Date: 20081029
  Transmission Date: 20090506
  Serious: Yes (Hospitalization)
  Sender: FDA-Public Use
  Company Number: JP-ELI_LILLY_AND_COMPANY-JP200810007133

PATIENT
  Age: 18 Year
  Sex: Female

DRUGS (1)
  1. ZYPREXA [Suspect]
     Indication: ANOREXIA NERVOSA
     Dosage: 5 MG, UNKNOWN
     Route: 048

REACTIONS (7)
  - ASCITES [None]
  - HYPERPHAGIA [None]
  - OEDEMA PERIPHERAL [None]
  - PERICARDIAL EFFUSION [None]
  - PLEURAL EFFUSION [None]
  - PULMONARY OEDEMA [None]
  - WEIGHT INCREASED [None]
